FAERS Safety Report 5839115-X (Version None)
Quarter: 2008Q3

REPORT INFORMATION
  Report Type: 
  Country: None (occurrence: None)
  Receive Date: 20080808
  Receipt Date: 20080729
  Transmission Date: 20090109
  Serious: Yes (Hospitalization)
  Sender: FDA-Public Use
  Company Number: DE-ABBOTT-07P-062-0378712-00

PATIENT
  Sex: Female
  Weight: 72 kg

DRUGS (24)
  1. HUMIRA [Suspect]
     Indication: RHEUMATOID ARTHRITIS
     Route: 058
     Dates: start: 20050101
  2. METHOTREXATE [Suspect]
     Indication: DRUG USE FOR UNKNOWN INDICATION
  3. METHOTREXATE [Suspect]
  4. METHOTREXATE [Suspect]
  5. METHOTREXATE [Suspect]
  6. PREDNISOLONE [Concomitant]
     Indication: RHEUMATOID ARTHRITIS
     Route: 048
     Dates: start: 19970101
  7. METHOTREXATE [Concomitant]
     Indication: RHEUMATOID ARTHRITIS
     Route: 048
     Dates: start: 19970101
  8. METHOTREXATE [Concomitant]
     Dates: start: 20020901
  9. METHOTREXATE [Concomitant]
  10. METHOTREXATE [Concomitant]
  11. METHOTREXATE [Concomitant]
  12. METHOTREXATE [Concomitant]
  13. METHOTREXATE [Concomitant]
  14. METHOTREXATE [Concomitant]
     Dates: start: 20050401
  15. METHOTREXATE [Concomitant]
     Dates: start: 20050501
  16. METHOTREXATE [Concomitant]
  17. METHOTREXATE [Concomitant]
  18. FOLIC ACID [Concomitant]
     Indication: VITAMIN SUPPLEMENTATION
     Route: 048
     Dates: start: 19970101
  19. LEVOTHYROXINE SODIUM [Concomitant]
     Indication: THYROIDECTOMY
     Dosage: 125-100 MCG
     Route: 048
     Dates: start: 20030101
  20. SIMVASTATIN [Concomitant]
     Indication: HYPERCHOLESTEROLAEMIA
     Route: 048
     Dates: start: 20060801
  21. REMICADE [Concomitant]
     Indication: DRUG USE FOR UNKNOWN INDICATION
     Dates: start: 20020901
  22. REMICADE [Concomitant]
  23. REMICADE [Concomitant]
  24. REMICADE [Concomitant]

REACTIONS (4)
  - CHEST PAIN [None]
  - HYPERTENSION [None]
  - RESTLESSNESS [None]
  - TACHYCARDIA [None]
